FAERS Safety Report 25277529 (Version 5)
Quarter: 2025Q3

REPORT INFORMATION
  Report Type: Spontaneous
  Country: US (occurrence: US)
  Receive Date: 20250507
  Receipt Date: 20250918
  Transmission Date: 20251021
  Serious: Yes (Other)
  Sender: ROCHE
  Company Number: US-ROCHE-10000272329

PATIENT
  Sex: Female
  Weight: 74.8 kg

DRUGS (2)
  1. XOLAIR [Suspect]
     Active Substance: OMALIZUMAB
     Indication: Mast cell activation syndrome
     Route: 058
     Dates: start: 202409
  2. XOLAIR [Suspect]
     Active Substance: OMALIZUMAB
     Dosage: STRENGTH: 300MG/2ML
     Route: 058
     Dates: start: 20220617

REACTIONS (5)
  - Off label use [Unknown]
  - Mast cell activation syndrome [Unknown]
  - Anaphylactic reaction [Unknown]
  - Urticaria [Unknown]
  - Pruritus [Not Recovered/Not Resolved]
